FAERS Safety Report 4393277-2 (Version None)
Quarter: 2004Q3

REPORT INFORMATION
  Report Type: 
  Country: None (occurrence: None)
  Receive Date: 20040701
  Receipt Date: 20040611
  Transmission Date: 20050211
  Serious: Yes (Death, Hospitalization, Other)
  Sender: FDA-Public Use
  Company Number: DE_040613750

PATIENT
  Age: 43 Year
  Sex: Male

DRUGS (19)
  1. VANCOMYCIN [Suspect]
     Indication: PYREXIA
     Dates: start: 20040112, end: 20040301
  2. AMPHOTERICIN B [Concomitant]
  3. CIDOFOVIR [Concomitant]
  4. CYCLOPHOSPHAMIDE [Concomitant]
  5. DOXYCYCLINE [Concomitant]
  6. FOSCARNET SODIUM [Concomitant]
  7. CYCLOSPORINE [Concomitant]
  8. GANCICLOVIR [Concomitant]
  9. PENTAMIDINE [Concomitant]
  10. MEROPENEM [Concomitant]
  11. PANTOPRAZOLE [Concomitant]
  12. KONAKION [Concomitant]
  13. ACETYLCYSTEINE [Concomitant]
  14. ACETAMINOPHEN [Concomitant]
  15. GRANISETRON [Concomitant]
  16. LENOGRASTIM [Concomitant]
  17. METRONIDAZOLE [Concomitant]
  18. ACYCLOVIR [Concomitant]
  19. VORICONAZOLE [Concomitant]

REACTIONS (15)
  - ALANINE AMINOTRANSFERASE INCREASED [None]
  - ASPARTATE AMINOTRANSFERASE INCREASED [None]
  - BLOOD AMYLASE INCREASED [None]
  - BONE MARROW TRANSPLANT [None]
  - CYSTITIS HAEMORRHAGIC [None]
  - HYPOKALAEMIA [None]
  - IMMUNOSUPPRESSION [None]
  - INFECTION [None]
  - LIPASE INCREASED [None]
  - MALNUTRITION [None]
  - PNEUMONIA BACTERIAL [None]
  - RENAL FAILURE ACUTE [None]
  - RESPIRATORY FAILURE [None]
  - SEPSIS [None]
  - VENOUS OCCLUSION [None]
